FAERS Safety Report 24540184 (Version 1)
Quarter: 2024Q4

REPORT INFORMATION
  Report Type: Spontaneous
  Country: JP (occurrence: JP)
  Receive Date: 20241023
  Receipt Date: 20241023
  Transmission Date: 20250115
  Serious: Yes (Hospitalization, Other)
  Sender: ALEXION PHARMACEUTICALS
  Company Number: JP-ASTRAZENECA-240106249_013120_P_1

PATIENT
  Age: 81 Year
  Weight: 64 kg

DRUGS (2)
  1. DURVALUMAB [Suspect]
     Active Substance: DURVALUMAB
     Indication: Hepatocellular carcinoma
     Dosage: 1500 MILLIGRAM, Q4W
  2. TREMELIMUMAB [Suspect]
     Active Substance: TREMELIMUMAB
     Indication: Hepatocellular carcinoma
     Dosage: 300 MILLIGRAM

REACTIONS (9)
  - Liver carcinoma ruptured [Unknown]
  - Haemorrhagic ascites [Unknown]
  - Hepatocellular carcinoma [Unknown]
  - Tumour marker increased [Unknown]
  - Movement disorder [Unknown]
  - Malaise [Unknown]
  - Glycosylated haemoglobin increased [Unknown]
  - Hepatic enzyme increased [Unknown]
  - Inflammation [Unknown]
